FAERS Safety Report 12488278 (Version 3)
Quarter: 2016Q3

REPORT INFORMATION
  Report Type: Report from Study
  Country: US (occurrence: US)
  Receive Date: 20160622
  Receipt Date: 20160815
  Transmission Date: 20161109
  Serious: Yes (Other)
  Sender: FDA-Public Use
  Company Number: US-JAZZ-2016-US-010965

PATIENT
  Age: 27 Year
  Sex: Female

DRUGS (9)
  1. DEPAKOTE [Concomitant]
     Active Substance: DIVALPROEX SODIUM
  2. LITHIUM. [Concomitant]
     Active Substance: LITHIUM
  3. SIMETHICONE (DIMETHICONE) [Concomitant]
     Active Substance: DIMETHICONE
  4. RITALIN [Concomitant]
     Active Substance: METHYLPHENIDATE HYDROCHLORIDE
  5. HALDOL [Concomitant]
     Active Substance: HALOPERIDOL
  6. CLOZAPINE ODT [Suspect]
     Active Substance: CLOZAPINE
     Dosage: UNK MG, QD
  7. FAZACLO [Suspect]
     Active Substance: CLOZAPINE
     Dosage: UNK MG, QD
     Route: 048
  8. LUVOX [Concomitant]
     Active Substance: FLUVOXAMINE MALEATE
  9. MULTIVITAMIN [Concomitant]
     Active Substance: VITAMINS

REACTIONS (1)
  - Neutropenia [Recovered/Resolved]

NARRATIVE: CASE EVENT DATE: 20160608
